FAERS Safety Report 22170506 (Version 3)
Quarter: 2024Q3

REPORT INFORMATION
  Report Type: Report from Study
  Country: US (occurrence: US)
  Receive Date: 20230404
  Receipt Date: 20240930
  Transmission Date: 20241017
  Serious: No
  Sender: NOVARTIS
  Company Number: US-002147023-NVSC2023US076926

PATIENT
  Age: 68 Year
  Sex: Male

DRUGS (1)
  1. ENTRESTO [Suspect]
     Active Substance: SACUBITRIL\VALSARTAN
     Indication: Dyspnoea exertional
     Dosage: UNK
     Route: 048
     Dates: start: 20230314, end: 20230316

REACTIONS (5)
  - Blood glucose increased [Recovering/Resolving]
  - Ill-defined disorder [Unknown]
  - Peripheral swelling [Unknown]
  - Muscle fatigue [Unknown]
  - Off label use [Unknown]

NARRATIVE: CASE EVENT DATE: 20230316
